FAERS Safety Report 16091402 (Version 1)
Quarter: 2019Q1

REPORT INFORMATION
  Report Type: Spontaneous
  Country: FR (occurrence: FR)
  Receive Date: 20190319
  Receipt Date: 20190319
  Transmission Date: 20190418
  Serious: Yes (Hospitalization, Other)
  Sender: FDA-Public Use
  Company Number: FR-SA-2019SA072944

PATIENT
  Age: 68 Year
  Sex: Male

DRUGS (2)
  1. RIFINAH [Suspect]
     Active Substance: ISONIAZID\RIFAMPIN
     Indication: PSORIASIS
     Dosage: 300 MG
     Dates: start: 201902
  2. RIFINAH [Suspect]
     Active Substance: ISONIAZID\RIFAMPIN
     Dosage: 300 MG

REACTIONS (9)
  - Pulmonary embolism [Unknown]
  - Phlebitis [Unknown]
  - Malaise [Unknown]
  - Pain in extremity [Unknown]
  - Tooth extraction [Unknown]
  - Fatigue [Unknown]
  - Treatment noncompliance [Unknown]
  - Feeling abnormal [Unknown]
  - Product use in unapproved indication [Unknown]

NARRATIVE: CASE EVENT DATE: 201902
